FAERS Safety Report 16895894 (Version 1)
Quarter: 2019Q4

REPORT INFORMATION
  Report Type: Not Available
  Country: CA (occurrence: CA)
  Receive Date: 20191008
  Receipt Date: 20191008
  Transmission Date: 20200122
  Serious: Yes (Other)
  Sender: FDA-Public Use
  Company Number: CA-ANIPHARMA-2019-CA-001469

PATIENT
  Age: 47 Year
  Sex: Female

DRUGS (3)
  1. PROPRANOLOL EXTENDED RELEASE CAPSULES (NON-SPECIFIC) [Suspect]
     Active Substance: PROPRANOLOL HYDROCHLORIDE
     Indication: MIGRAINE
     Dosage: UNKNOWN
     Route: 065
  2. SAXENDA [Suspect]
     Active Substance: LIRAGLUTIDE
     Indication: WEIGHT CONTROL
     Dosage: 2.4 MG, 1X/DAY; 3 MG, 1X/DAY; 2.4 MG, 1X/DAY; UNK; 1.8 MG, 1X/DAY;
     Route: 058
  3. ELAVIL [Concomitant]
     Active Substance: AMITRIPTYLINE HYDROCHLORIDE
     Dosage: UNKNOWN

REACTIONS (5)
  - Fatigue [Unknown]
  - Intentional product use issue [Unknown]
  - Syncope [Unknown]
  - Headache [Unknown]
  - Dysgeusia [Unknown]
